FAERS Safety Report 6773028-4 (Version None)
Quarter: 2010Q2

REPORT INFORMATION
  Report Type: 
  Country: None (occurrence: None)
  Receive Date: 20100614
  Receipt Date: 20100601
  Transmission Date: 20101027
  Serious: Yes (Other)
  Sender: FDA-Public Use
  Company Number: 7002409

PATIENT
  Age: 70 Year
  Sex: Female
  Weight: 48 kg

DRUGS (7)
  1. REBIF [Suspect]
     Indication: DRUG USE FOR UNKNOWN INDICATION
     Dosage: 44 MCG, 3 IN 1 WK, SUBCUTANEOUS
     Route: 058
     Dates: start: 20071031
  2. HYZAAR [Concomitant]
  3. SYNTHROID [Concomitant]
  4. LISINOPRIL [Concomitant]
  5. ATENOLOL [Concomitant]
  6. OXYBUTYNIN CL ER (OXYBUTYNAN HYDROCHLORIDE) [Concomitant]
  7. ALENEDRONATE SODIUM (ALENDRONATE SODIUM) [Concomitant]

REACTIONS (8)
  - ANAEMIA [None]
  - HEADACHE [None]
  - JAW DISORDER [None]
  - JOINT SWELLING [None]
  - RETINAL ARTERY OCCLUSION [None]
  - TOOTH DISORDER [None]
  - UNEVALUABLE EVENT [None]
  - WEIGHT DECREASED [None]
